FAERS Safety Report 17879274 (Version 2)
Quarter: 2020Q3

REPORT INFORMATION
  Report Type: Report from Study
  Country: US (occurrence: US)
  Receive Date: 20200610
  Receipt Date: 20200722
  Transmission Date: 20201103
  Serious: Yes (Death, Hospitalization, Other)
  Sender: FDA-Public Use
  Company Number: US-ROCHE-2010111

PATIENT
  Age: 56 Year
  Sex: Female

DRUGS (14)
  1. DOCUSATE SODIUM. [Concomitant]
     Active Substance: DOCUSATE SODIUM
     Dates: start: 20160817
  2. CHERATUSSIN AC [Concomitant]
     Active Substance: CODEINE PHOSPHATE\GUAIFENESIN
     Dates: start: 20161123
  3. DICLOFENAC SODIUM. [Concomitant]
     Active Substance: DICLOFENAC SODIUM
     Dates: start: 20161030
  4. TRASTUZUMAB EMTANSINE [Suspect]
     Active Substance: ADO-TRASTUZUMAB EMTANSINE
     Indication: ADENOCARCINOMA
  5. GABAPENTIN. [Concomitant]
     Active Substance: GABAPENTIN
     Dates: start: 20160415
  6. LACTULOSE. [Concomitant]
     Active Substance: LACTULOSE
     Dates: start: 20161116
  7. BENZONATATE. [Concomitant]
     Active Substance: BENZONATATE
     Dates: start: 20161116
  8. FAMOTIDINE. [Concomitant]
     Active Substance: FAMOTIDINE
     Dates: start: 20161029
  9. CURCUMIN [Concomitant]
     Active Substance: CURCUMIN
     Dates: start: 20161024
  10. LORAZEPAM. [Concomitant]
     Active Substance: LORAZEPAM
     Dates: start: 20161116
  11. NYSTATIN. [Concomitant]
     Active Substance: NYSTATIN
     Dates: start: 20161214
  12. OXYCODON [Concomitant]
     Active Substance: OXYCODONE
     Dates: start: 20170104
  13. TRASTUZUMAB EMTANSINE [Suspect]
     Active Substance: ADO-TRASTUZUMAB EMTANSINE
     Indication: LUNG ADENOCARCINOMA STAGE IV
     Dosage: DATE OF MOST RECENT DOSE? 04/OCT/2017?DATE OF MOST RECENT DOSE? 22/NOV/2017?DATE OF MOST RECENT DOSE
     Route: 042
     Dates: start: 20161123
  14. AMBIEN [Concomitant]
     Active Substance: ZOLPIDEM TARTRATE
     Dates: start: 20161004

REACTIONS (12)
  - Pyrexia [Recovered/Resolved]
  - Chills [Recovered/Resolved]
  - Sinus tachycardia [Recovered/Resolved]
  - Back pain [Recovered/Resolved]
  - Death [Fatal]
  - Anaemia [Recovered/Resolved]
  - Haemorrhage [Recovered/Resolved]
  - Hypoxia [Recovered/Resolved]
  - Pain [Recovered/Resolved]
  - Dyspnoea [Not Recovered/Not Resolved]
  - Non-cardiac chest pain [Not Recovered/Not Resolved]
  - Splenic haemorrhage [Recovered/Resolved]

NARRATIVE: CASE EVENT DATE: 20171013
